FAERS Safety Report 13128524 (Version 1)
Quarter: 2017Q1

REPORT INFORMATION
  Report Type: Spontaneous
  Country: US (occurrence: US)
  Receive Date: 20170118
  Receipt Date: 20170118
  Transmission Date: 20170428
  Serious: No
  Sender: FDA-Public Use
  Company Number: US-TEIKOKU PHARMA USA-TPU2017-00036

PATIENT
  Sex: Male
  Weight: 104.42 kg

DRUGS (1)
  1. LIDOCAINE PATCH [Suspect]
     Active Substance: LIDOCAINE
     Indication: POST HERPETIC NEURALGIA
     Dosage: APPLY ONE PATCH ON UPPER PORTION OF CHEST AND ONE PATCH ON THIGH, ON FOR ONLY 20 MINUTES
     Dates: start: 20170112

REACTIONS (2)
  - Application site irritation [Not Recovered/Not Resolved]
  - Pain [Not Recovered/Not Resolved]
